FAERS Safety Report 5369935-X (Version None)
Quarter: 2007Q2

REPORT INFORMATION
  Report Type: 
  Country: None (occurrence: None)
  Receive Date: 20070621
  Receipt Date: 20070531
  Transmission Date: 20071010
  Serious: Yes (Other)
  Sender: FDA-Public Use
  Company Number: ENTC2007-0097

PATIENT
  Age: 58 Year
  Sex: Male

DRUGS (2)
  1. STALEVO 100 [Suspect]
     Indication: PARKINSON'S DISEASE
     Dosage: 100+25+200 MG, TID; ORAL
     Route: 048
     Dates: start: 20061215, end: 20070302
  2. EFFEXOR [Concomitant]

REACTIONS (1)
  - GOUTY ARTHRITIS [None]
